FAERS Safety Report 4395583-4 (Version None)
Quarter: 2004Q3

REPORT INFORMATION
  Report Type: 
  Country: None (occurrence: None)
  Receive Date: 20040708
  Receipt Date: 20040628
  Transmission Date: 20050211
  Serious: Yes (Congenital Anomaly)
  Sender: FDA-Public Use
  Company Number: 2004UW13540

PATIENT
  Age: 0 Day
  Sex: Male

DRUGS (2)
  1. PULMICORT [Suspect]
  2. VENTOLIN [Suspect]

REACTIONS (6)
  - CAESAREAN SECTION [None]
  - CEREBRAL PALSY [None]
  - DRUG EXPOSURE DURING PREGNANCY [None]
  - FOETAL DISTRESS SYNDROME [None]
  - NEONATAL DISORDER [None]
  - NERVOUS SYSTEM DISORDER [None]
